FAERS Safety Report 9631827 (Version 1)
Quarter: 2013Q4

REPORT INFORMATION
  Report Type: Spontaneous
  Country: US (occurrence: US)
  Receive Date: 20131018
  Receipt Date: 20131018
  Transmission Date: 20140711
  Serious: Yes (Other)
  Sender: FDA-Public Use
  Company Number: US-PFIZER INC-2013294162

PATIENT
  Age: 58 Year
  Sex: Female

DRUGS (3)
  1. ALPRAZOLAM [Suspect]
     Dosage: 1 MG, UNK
  2. ALPRAZOLAM [Suspect]
     Dosage: 3MG TABLETS AT NIGHT
  3. ALPRAZOLAM [Suspect]
     Dosage: UNK

REACTIONS (18)
  - Abasia [Unknown]
  - Aphagia [Unknown]
  - Mutism [Unknown]
  - Feeling abnormal [Unknown]
  - Reaction to drug excipients [Unknown]
  - Abdominal discomfort [Unknown]
  - Abdominal distension [Unknown]
  - Pain [Unknown]
  - Constipation [Unknown]
  - Malaise [Unknown]
  - Drug hypersensitivity [Unknown]
  - Rash [Not Recovered/Not Resolved]
  - Rash pruritic [Recovered/Resolved]
  - Scratch [Unknown]
  - Contusion [Unknown]
  - Dizziness [Unknown]
  - Insomnia [Unknown]
  - Fatigue [Unknown]
